FAERS Safety Report 9802907 (Version 1)
Quarter: 2014Q1

REPORT INFORMATION
  Report Type: Spontaneous
  Country: GB (occurrence: GB)
  Receive Date: 20140108
  Receipt Date: 20140108
  Transmission Date: 20141002
  Serious: Yes (Other)
  Sender: FDA-Public Use
  Company Number: GB-TEVA-454629ISR

PATIENT
  Age: 86 Year
  Sex: Female

DRUGS (2)
  1. METOPROLOL [Suspect]
     Indication: HYPERTENSION
     Dosage: 100 MILLIGRAM DAILY;
     Route: 048
  2. BENDROFLUMETHIAZIDE [Concomitant]
     Indication: DIURETIC THERAPY
     Dosage: 1.25 MILLIGRAM DAILY;

REACTIONS (2)
  - Cataract [Unknown]
  - Dry eye [Unknown]
